FAERS Safety Report 10022109 (Version 2)
Quarter: 2014Q1

REPORT INFORMATION
  Report Type: Spontaneous
  Country: US (occurrence: US)
  Receive Date: 20140319
  Receipt Date: 20140324
  Transmission Date: 20141002
  Serious: Yes (Death)
  Sender: FDA-Public Use
  Company Number: US-GLAXOSMITHKLINE-A1065304A

PATIENT
  Sex: Male

DRUGS (1)
  1. ARIXTRA [Suspect]
     Indication: CONVULSION
     Route: 065
     Dates: start: 20131209

REACTIONS (4)
  - Death [Fatal]
  - Brain neoplasm malignant [Unknown]
  - Neoplasm malignant [Unknown]
  - Thrombosis [Unknown]
